FAERS Safety Report 14350139 (Version 2)
Quarter: 2018Q1

REPORT INFORMATION
  Report Type: Report from Study
  Country: HU (occurrence: HU)
  Receive Date: 20180104
  Receipt Date: 20180205
  Transmission Date: 20180509
  Serious: Yes (Hospitalization)
  Sender: FDA-Public Use
  Company Number: HU-ROCHE-1798931

PATIENT
  Age: 71 Year
  Sex: Male
  Weight: 79 kg

DRUGS (18)
  1. CREMOR [Concomitant]
     Route: 065
     Dates: start: 20110625
  2. FUROSEMID [Concomitant]
     Active Substance: FUROSEMIDE
     Indication: HYPERTENSION
     Route: 065
     Dates: start: 20160517
  3. PANTOPRAZOLE [Concomitant]
     Active Substance: PANTOPRAZOLE
     Route: 065
     Dates: start: 20160517
  4. ALPRAZOLAM. [Concomitant]
     Active Substance: ALPRAZOLAM
     Indication: ANXIETY
  5. ENOXAPARIN SODIUM. [Concomitant]
     Active Substance: ENOXAPARIN SODIUM
     Indication: ACUTE CORONARY SYNDROME
     Route: 065
     Dates: start: 20160426
  6. ATORVASTATIN [Concomitant]
     Active Substance: ATORVASTATIN
     Indication: HYPERLIPIDAEMIA
     Route: 065
     Dates: start: 20160426
  7. KALDYUM [Concomitant]
     Active Substance: POTASSIUM CHLORIDE
     Indication: HYPERTENSION
     Route: 065
     Dates: start: 20160517
  8. ASPIRIN PROTECT [Concomitant]
     Active Substance: ASPIRIN
     Indication: ACUTE CORONARY SYNDROME
     Route: 065
     Dates: start: 20160426
  9. ALPRAZOLAM. [Concomitant]
     Active Substance: ALPRAZOLAM
     Indication: ANXIETY
     Route: 065
     Dates: start: 20160426
  10. HYDROCHLOROTHIAZID [Concomitant]
     Active Substance: HYDROCHLOROTHIAZIDE
     Indication: HYPERTENSION
     Route: 065
     Dates: start: 2008
  11. CREMOR [Concomitant]
     Indication: DRY SKIN
     Route: 065
     Dates: start: 20120625
  12. VEMURAFENIB. [Suspect]
     Active Substance: VEMURAFENIB
     Indication: MALIGNANT MELANOMA
     Dosage: MOST RECENT DOSE PRIOR TO SAE: 03/JUL/2016 960MG?MOST RECENT DOSE PRIOR TO SAE: 20/FEB/2017 960MG?MO
     Route: 048
     Dates: start: 20150421
  13. RAMIPRIL. [Concomitant]
     Active Substance: RAMIPRIL
     Indication: HYPERTONIA
     Route: 065
     Dates: start: 2008
  14. CARBAMID [Concomitant]
     Indication: PALMOPLANTAR KERATODERMA
     Route: 065
     Dates: start: 201205
  15. ELOCOM [Concomitant]
     Active Substance: MOMETASONE FUROATE
     Route: 065
     Dates: start: 20170808
  16. VEMURAFENIB. [Suspect]
     Active Substance: VEMURAFENIB
     Dosage: FIRST DOSE RECEIVED IN ANTECEDENT STUDY, ANTECEDENT PROTOCOL: MO25515
     Route: 048
     Dates: start: 20120328
  17. BISOPROLOL [Concomitant]
     Active Substance: BISOPROLOL
     Indication: HYPERTONIA
  18. CLOPIDOGREL [Concomitant]
     Active Substance: CLOPIDOGREL BISULFATE
     Indication: ACUTE CORONARY SYNDROME
     Route: 065
     Dates: start: 20160426

REACTIONS (2)
  - Metastatic malignant melanoma [Recovered/Resolved]
  - Metastatic malignant melanoma [Recovered/Resolved]

NARRATIVE: CASE EVENT DATE: 20160704
